FAERS Safety Report 4449166-8 (Version None)
Quarter: 2004Q3

REPORT INFORMATION
  Report Type: 
  Country: None (occurrence: None)
  Receive Date: 20040910
  Receipt Date: 20040825
  Transmission Date: 20050211
  Serious: Yes (Hospitalization)
  Sender: FDA-Public Use
  Company Number: 8006251

PATIENT
  Age: 9 Year
  Sex: Male
  Weight: 19.5 kg

DRUGS (4)
  1. KEPPRA [Suspect]
     Indication: EPILEPSY
     Dosage: 500 MG 2/D PO
     Route: 048
     Dates: start: 20031001, end: 20040428
  2. KEPPRA [Suspect]
     Indication: EPILEPSY
     Dosage: PO
     Route: 048
     Dates: start: 20040401, end: 20040401
  3. KEPPRA [Suspect]
     Indication: EPILEPSY
     Dosage: PO
     Route: 048
     Dates: start: 20040607, end: 20040618
  4. KEPPRA [Suspect]
     Indication: EPILEPSY
     Dosage: 500 MG/ 2/D PO
     Route: 048
     Dates: start: 20040619

REACTIONS (7)
  - APATHY [None]
  - BLOOD GLUCOSE INCREASED [None]
  - CONVULSION [None]
  - GASTROENTERITIS [None]
  - PALLOR [None]
  - PANCREATITIS [None]
  - SOMNOLENCE [None]
